FAERS Safety Report 25648851 (Version 1)
Quarter: 2025Q3

REPORT INFORMATION
  Report Type: Spontaneous
  Country: US (occurrence: US)
  Receive Date: 20250806
  Receipt Date: 20250806
  Transmission Date: 20251020
  Serious: Yes (Hospitalization)
  Sender: MYLAN
  Company Number: US-MYLANLABS-2025M1064257

PATIENT
  Age: 4 Year
  Sex: Female
  Weight: 12.3 kg

DRUGS (40)
  1. BUSULFAN [Suspect]
     Active Substance: BUSULFAN
     Indication: Bone marrow conditioning regimen
  2. BUSULFAN [Suspect]
     Active Substance: BUSULFAN
     Route: 065
  3. BUSULFAN [Suspect]
     Active Substance: BUSULFAN
     Route: 065
  4. BUSULFAN [Suspect]
     Active Substance: BUSULFAN
  5. POSACONAZOLE [Suspect]
     Active Substance: POSACONAZOLE
     Indication: Fungaemia
  6. POSACONAZOLE [Suspect]
     Active Substance: POSACONAZOLE
     Route: 065
  7. POSACONAZOLE [Suspect]
     Active Substance: POSACONAZOLE
     Route: 065
  8. POSACONAZOLE [Suspect]
     Active Substance: POSACONAZOLE
  9. THYMOCYTE IMMUNE GLOBULIN NOS [Suspect]
     Active Substance: THYMOCYTE IMMUNE GLOBULIN NOS
     Indication: Bone marrow conditioning regimen
  10. THYMOCYTE IMMUNE GLOBULIN NOS [Suspect]
     Active Substance: THYMOCYTE IMMUNE GLOBULIN NOS
     Route: 065
  11. THYMOCYTE IMMUNE GLOBULIN NOS [Suspect]
     Active Substance: THYMOCYTE IMMUNE GLOBULIN NOS
     Route: 065
  12. THYMOCYTE IMMUNE GLOBULIN NOS [Suspect]
     Active Substance: THYMOCYTE IMMUNE GLOBULIN NOS
  13. FLUDARABINE [Suspect]
     Active Substance: FLUDARABINE PHOSPHATE
     Indication: Bone marrow conditioning regimen
  14. FLUDARABINE [Suspect]
     Active Substance: FLUDARABINE PHOSPHATE
     Route: 065
  15. FLUDARABINE [Suspect]
     Active Substance: FLUDARABINE PHOSPHATE
     Route: 065
  16. FLUDARABINE [Suspect]
     Active Substance: FLUDARABINE PHOSPHATE
  17. CYCLOPHOSPHAMIDE [Suspect]
     Active Substance: CYCLOPHOSPHAMIDE
     Indication: Bone marrow conditioning regimen
  18. CYCLOPHOSPHAMIDE [Suspect]
     Active Substance: CYCLOPHOSPHAMIDE
     Route: 065
  19. CYCLOPHOSPHAMIDE [Suspect]
     Active Substance: CYCLOPHOSPHAMIDE
     Route: 065
  20. CYCLOPHOSPHAMIDE [Suspect]
     Active Substance: CYCLOPHOSPHAMIDE
  21. MICAFUNGIN [Suspect]
     Active Substance: MICAFUNGIN SODIUM
     Indication: Fungaemia
  22. MICAFUNGIN [Suspect]
     Active Substance: MICAFUNGIN SODIUM
     Route: 065
  23. MICAFUNGIN [Suspect]
     Active Substance: MICAFUNGIN SODIUM
     Route: 065
  24. MICAFUNGIN [Suspect]
     Active Substance: MICAFUNGIN SODIUM
  25. AMPHOTERICIN B [Suspect]
     Active Substance: AMPHOTERICIN B
     Indication: Fungaemia
  26. AMPHOTERICIN B [Suspect]
     Active Substance: AMPHOTERICIN B
     Route: 065
  27. AMPHOTERICIN B [Suspect]
     Active Substance: AMPHOTERICIN B
     Route: 065
  28. AMPHOTERICIN B [Suspect]
     Active Substance: AMPHOTERICIN B
  29. ACYCLOVIR [Concomitant]
     Active Substance: ACYCLOVIR
     Indication: Prophylaxis
  30. ACYCLOVIR [Concomitant]
     Active Substance: ACYCLOVIR
     Route: 065
  31. ACYCLOVIR [Concomitant]
     Active Substance: ACYCLOVIR
     Route: 065
  32. ACYCLOVIR [Concomitant]
     Active Substance: ACYCLOVIR
  33. LETERMOVIR [Concomitant]
     Active Substance: LETERMOVIR
     Indication: Prophylaxis
  34. LETERMOVIR [Concomitant]
     Active Substance: LETERMOVIR
     Route: 065
  35. LETERMOVIR [Concomitant]
     Active Substance: LETERMOVIR
     Route: 065
  36. LETERMOVIR [Concomitant]
     Active Substance: LETERMOVIR
  37. PENTAMIDINE [Concomitant]
     Active Substance: PENTAMIDINE
     Indication: Prophylaxis
  38. PENTAMIDINE [Concomitant]
     Active Substance: PENTAMIDINE
     Route: 065
  39. PENTAMIDINE [Concomitant]
     Active Substance: PENTAMIDINE
     Route: 065
  40. PENTAMIDINE [Concomitant]
     Active Substance: PENTAMIDINE

REACTIONS (3)
  - Fungaemia [Recovered/Resolved]
  - Febrile neutropenia [Recovered/Resolved]
  - Drug ineffective [Unknown]
